FAERS Safety Report 8536122-3 (Version None)
Quarter: 2012Q3

REPORT INFORMATION
  Report Type: 
  Country: None (occurrence: None)
  Receive Date: 20120725
  Receipt Date: 20120717
  Transmission Date: 20120928
  Serious: Yes (Hospitalization)
  Sender: FDA-Public Use
  Company Number: JP-ASTELLAS-2012JP005529

PATIENT
  Age: 75 Year
  Sex: Male

DRUGS (8)
  1. CANDESARTAN CILEXETIL [Concomitant]
     Dosage: 4 MG, UID/QD
     Route: 048
  2. FLIVASTATIN SODIUM [Concomitant]
     Dosage: 50 MG, UID/QD
     Route: 048
     Dates: start: 20110129
  3. ALLOPURINOL [Concomitant]
     Dosage: 100 MG, BID
     Route: 048
  4. URSO                               /00465701/ [Concomitant]
     Dosage: 200 MG, TID
     Route: 048
     Dates: end: 20120616
  5. CORINAEL [Concomitant]
     Dosage: 40 MG, UID/QD
     Route: 048
  6. KAZMARIN [Concomitant]
     Dosage: 6 MG, UID/QD
     Route: 048
     Dates: end: 20120616
  7. CRESTOR [Concomitant]
     Dosage: 2.5 MG, UID/QD
     Route: 048
  8. MYRBETRIQ [Suspect]
     Indication: HYPERTONIC BLADDER
     Dosage: 50 MG, UID/QD
     Route: 048
     Dates: start: 20120204, end: 20120616

REACTIONS (1)
  - BLOOD GLUCOSE INCREASED [None]
